FAERS Safety Report 14274435 (Version 1)
Quarter: 2017Q4

REPORT INFORMATION
  Report Type: Spontaneous
  Country: FR (occurrence: FR)
  Receive Date: 20171211
  Receipt Date: 20171211
  Transmission Date: 20180321
  Serious: Yes (Hospitalization)
  Sender: FDA-Public Use
  Company Number: FR-OTSUKA-DJ201501457

PATIENT
  Age: 48 Year
  Sex: Male

DRUGS (4)
  1. VALIUM [Concomitant]
     Active Substance: DIAZEPAM
     Indication: PRODUCT USED FOR UNKNOWN INDICATION
     Dosage: UNK
     Route: 065
     Dates: start: 20141222
  2. VALIUM [Concomitant]
     Active Substance: DIAZEPAM
     Indication: MENTAL DISORDER
  3. LOXAPAC                            /00401801/ [Suspect]
     Active Substance: LOXAPINE SUCCINATE
     Indication: SCHIZOPHRENIA
     Dosage: UNK, ONE TIME DOSE
     Route: 048
     Dates: start: 20141222, end: 20150111
  4. ABILIFY [Suspect]
     Active Substance: ARIPIPRAZOLE
     Indication: SCHIZOPHRENIA
     Dosage: 40 MG, QD
     Route: 048
     Dates: start: 20141231, end: 20150106

REACTIONS (2)
  - Off label use [Unknown]
  - Rash pustular [Recovered/Resolved]

NARRATIVE: CASE EVENT DATE: 20150102
